FAERS Safety Report 6448064-8 (Version None)
Quarter: 2009Q4

REPORT INFORMATION
  Report Type: 
  Country: None (occurrence: None)
  Receive Date: 20091120
  Receipt Date: 20091019
  Transmission Date: 20100525
  Serious: No
  Sender: FDA-Public Use
  Company Number: US-BAYER-200936743NA

PATIENT
  Age: 26 Year
  Sex: Female

DRUGS (2)
  1. MIRENA [Suspect]
     Indication: CONTRACEPTION
     Route: 015
     Dates: start: 20080401, end: 20090901
  2. MIRENA [Suspect]
     Route: 015
     Dates: start: 20090901

REACTIONS (6)
  - GALACTORRHOEA [None]
  - MEDICAL DEVICE PAIN [None]
  - MOOD SWINGS [None]
  - NAUSEA [None]
  - POST PROCEDURAL HAEMORRHAGE [None]
  - VOMITING [None]
